FAERS Safety Report 5664310-2 (Version None)
Quarter: 2008Q1

REPORT INFORMATION
  Report Type: 
  Country: None (occurrence: None)
  Receive Date: 20080314
  Receipt Date: 20080307
  Transmission Date: 20080703
  Serious: Yes (Death, Other)
  Sender: FDA-Public Use
  Company Number: PHHY2008JP02304

PATIENT
  Age: 54 Year
  Sex: Male

DRUGS (8)
  1. METHOTREXATE [Concomitant]
     Indication: BONE MARROW TRANSPLANT
     Dates: start: 20050601
  2. CYCLOSPORINE [Suspect]
     Indication: BONE MARROW TRANSPLANT
     Dates: start: 20050601, end: 20050101
  3. CYCLOSPORINE [Suspect]
     Dates: start: 20050101
  4. CYCLOPHOSPHAMIDE [Concomitant]
  5. RADIOTHERAPY [Concomitant]
  6. METHYLPREDNISOLONE [Concomitant]
     Indication: ENGRAFTMENT SYNDROME
     Dosage: 40 MG/DAY
  7. METHYLPREDNISOLONE [Concomitant]
     Dosage: 500 MG/DAY
  8. METHYLPREDNISOLONE [Concomitant]
     Dosage: 2000 MG/DAY

REACTIONS (15)
  - CHEST X-RAY ABNORMAL [None]
  - DYSPNOEA [None]
  - ENDOTRACHEAL INTUBATION [None]
  - ENGRAFTMENT SYNDROME [None]
  - EXTUBATION [None]
  - GAIT DISTURBANCE [None]
  - HAEMOPTYSIS [None]
  - HYPOXIA [None]
  - MECHANICAL VENTILATION [None]
  - PLATELET COUNT DECREASED [None]
  - PULMONARY ALVEOLAR HAEMORRHAGE [None]
  - RENAL FAILURE ACUTE [None]
  - RENAL IMPAIRMENT [None]
  - RHABDOMYOLYSIS [None]
  - VENOUS THROMBOSIS [None]
